FAERS Safety Report 8180467-6 (Version None)
Quarter: 2012Q1

REPORT INFORMATION
  Report Type: 
  Country: None (occurrence: None)
  Receive Date: 20120302
  Receipt Date: 20120223
  Transmission Date: 20120608
  Serious: Yes (Hospitalization)
  Sender: FDA-Public Use
  Company Number: JP-ALLERGAN-1202850US

PATIENT

DRUGS (1)
  1. BOTOX [Suspect]
     Indication: MUSCLE TIGHTNESS
     Dosage: UNK
     Route: 030
     Dates: start: 20111001, end: 20111001

REACTIONS (1)
  - RESPIRATORY FAILURE [None]
